FAERS Safety Report 6645286-8 (Version None)
Quarter: 2010Q1

REPORT INFORMATION
  Report Type: 
  Country: None (occurrence: None)
  Receive Date: 20100322
  Receipt Date: 20100311
  Transmission Date: 20100710
  Serious: Yes (Hospitalization)
  Sender: FDA-Public Use
  Company Number: FR-GILEAD-2006-0009112

PATIENT
  Sex: Male
  Weight: 73 kg

DRUGS (6)
  1. TRUVADA [Suspect]
     Indication: HIV INFECTION
     Route: 048
     Dates: start: 20060105
  2. SUSTIVA [Suspect]
     Indication: HIV INFECTION
     Route: 048
     Dates: start: 20060105, end: 20060113
  3. CORTANCYL [Suspect]
     Indication: TUBERCULOSIS
     Route: 048
     Dates: start: 20051205, end: 20060113
  4. RIFATER [Concomitant]
     Indication: TUBERCULOSIS
     Dates: start: 20051130
  5. DEXAMBUTOL [Concomitant]
     Indication: TUBERCULOSIS
     Dates: start: 20051205
  6. BACTRIM [Concomitant]
     Indication: PNEUMOCYSTIS JIROVECI PNEUMONIA
     Dates: start: 20051130

REACTIONS (2)
  - MENTAL DISORDER [None]
  - PYREXIA [None]
